FAERS Safety Report 6018882-9 (Version None)
Quarter: 2008Q4

REPORT INFORMATION
  Report Type: 
  Country: None (occurrence: None)
  Receive Date: 20081224
  Receipt Date: 20081215
  Transmission Date: 20090506
  Serious: Yes (Life-Threatening, Disabling)
  Sender: FDA-Public Use
  Company Number: NL-CELGENEUS-114-20484-08121291

PATIENT
  Sex: Male
  Weight: 73 kg

DRUGS (2)
  1. INNOHEP [Suspect]
     Indication: PROPHYLAXIS
     Route: 058
     Dates: start: 20081201, end: 20081203
  2. ACENOCOUMAROL [Concomitant]
     Indication: DRUG USE FOR UNKNOWN INDICATION
     Route: 065
     Dates: start: 20060302, end: 20081201

REACTIONS (1)
  - CEREBROVASCULAR ACCIDENT [None]
